FAERS Safety Report 16673620 (Version 2)
Quarter: 2019Q3

REPORT INFORMATION
  Report Type: Spontaneous
  Country: DK (occurrence: DK)
  Receive Date: 20190806
  Receipt Date: 20190911
  Transmission Date: 20191004
  Serious: Yes (Other)
  Sender: FDA-Public Use
  Company Number: DK-PFIZER INC-2019329865

PATIENT
  Sex: Female

DRUGS (5)
  1. FIASP [Interacting]
     Active Substance: INSULIN ASPART
     Dosage: 52 IU, UNK (DURING THE RECENT 16 HOURS)
     Route: 065
  2. LEVEMIR [Concomitant]
     Active Substance: INSULIN DETEMIR
     Indication: TYPE 1 DIABETES MELLITUS
     Dosage: INCREASED HER DOSE OF LEVEMIR WITH 25%
     Route: 065
  3. FIASP [Interacting]
     Active Substance: INSULIN ASPART
     Indication: TYPE 1 DIABETES MELLITUS
     Dosage: 16 IU, 1X/DAY
     Route: 065
  4. LEVEMIR [Concomitant]
     Active Substance: INSULIN DETEMIR
     Dosage: UNK
     Route: 065
  5. MEDROL [Suspect]
     Active Substance: METHYLPREDNISOLONE
     Indication: MULTIPLE SCLEROSIS
     Dosage: 1000 MG, 1X/DAY (10 X 100 MG IN THE MORNING)
     Route: 065

REACTIONS (4)
  - Therapeutic product effect delayed [Unknown]
  - Multiple sclerosis [Unknown]
  - Blood glucose increased [Unknown]
  - Drug interaction [Unknown]
